FAERS Safety Report 5291037-1 (Version None)
Quarter: 2007Q2

REPORT INFORMATION
  Report Type: 
  Country: None (occurrence: None)
  Receive Date: 20070405
  Receipt Date: 20070405
  Transmission Date: 20071010
  Serious: Yes (Life-Threatening)
  Sender: FDA-Public Use
  Company Number: None

PATIENT
  Age: 49 Year
  Sex: Male
  Weight: 88.4514 kg

DRUGS (1)
  1. DIOVAN [Suspect]
     Indication: HYPERTENSION
     Dosage: 80 MG 1 DAY PO
     Route: 048
     Dates: start: 20061210, end: 20070401

REACTIONS (4)
  - CONFUSIONAL STATE [None]
  - DIZZINESS [None]
  - LIP SWELLING [None]
  - SWELLING FACE [None]
